FAERS Safety Report 8553058-2 (Version None)
Quarter: 2012Q3

REPORT INFORMATION
  Report Type: 
  Country: None (occurrence: None)
  Receive Date: 20120731
  Receipt Date: 20120723
  Transmission Date: 20120928
  Serious: Yes (Hospitalization)
  Sender: FDA-Public Use
  Company Number: US-SANOFI-AVENTIS-2012SA052058

PATIENT
  Age: 62 Year
  Sex: Female

DRUGS (5)
  1. HUMALOG [Concomitant]
  2. LANTUS SOLOSTAR [Suspect]
     Dosage: DOSE:42 UNIT(S)
     Route: 058
     Dates: start: 20120517
  3. SOLOSTAR [Suspect]
     Dates: start: 20120517
  4. GLIMEPIRIDE [Concomitant]
  5. METFORMIN HYDROCHLORIDE [Concomitant]

REACTIONS (1)
  - MALAISE [None]
